FAERS Safety Report 7394797-9 (Version None)
Quarter: 2011Q2

REPORT INFORMATION
  Report Type: 
  Country: None (occurrence: None)
  Receive Date: 20110405
  Receipt Date: 20110329
  Transmission Date: 20111010
  Serious: Yes (Death, Hospitalization)
  Sender: FDA-Public Use
  Company Number: A0760975A

PATIENT
  Age: 73 Year
  Sex: Male
  Weight: 138.6 kg

DRUGS (5)
  1. LANTUS [Concomitant]
  2. AVAPRO [Concomitant]
  3. VYTORIN [Concomitant]
  4. TOPROL-XL [Concomitant]
  5. AVANDIA [Suspect]
     Dosage: 8MG PER DAY
     Route: 048

REACTIONS (4)
  - CARDIAC FAILURE CONGESTIVE [None]
  - CORONARY ARTERY DISEASE [None]
  - DEATH [None]
  - MYOCARDIAL INFARCTION [None]
